FAERS Safety Report 5902863-7 (Version None)
Quarter: 2008Q3

REPORT INFORMATION
  Report Type: 
  Country: None (occurrence: None)
  Receive Date: 20080929
  Receipt Date: 20080929
  Transmission Date: 20090109
  Serious: Yes (Other)
  Sender: FDA-Public Use
  Company Number: None

PATIENT
  Age: 21 Year
  Sex: Male
  Weight: 95.2554 kg

DRUGS (1)
  1. GEODON [Suspect]
     Indication: BIPOLAR DISORDER
     Dosage: 80 MG BID PO
     Route: 048
     Dates: start: 20060803, end: 20070501

REACTIONS (2)
  - CONVULSION [None]
  - DISTURBANCE IN ATTENTION [None]
